FAERS Safety Report 13340239 (Version 1)
Quarter: 2017Q1

REPORT INFORMATION
  Report Type: Spontaneous
  Country: US (occurrence: US)
  Receive Date: 20170316
  Receipt Date: 20170316
  Transmission Date: 20170428
  Serious: Yes (Hospitalization, Other)
  Sender: FDA-Public Use
  Company Number: US-ASTRAZENECA-2017SE26666

PATIENT
  Age: 671 Day
  Sex: Male
  Weight: 11.3 kg

DRUGS (1)
  1. SYNAGIS [Suspect]
     Active Substance: PALIVIZUMAB
     Indication: RESPIRATORY SYNCYTIAL VIRUS INFECTION
     Dosage: 168.0MG UNKNOWN
     Route: 030
     Dates: start: 20170109

REACTIONS (3)
  - Human metapneumovirus test positive [Unknown]
  - Drug dose omission [Unknown]
  - Pneumonia [Unknown]

NARRATIVE: CASE EVENT DATE: 20170207
